FAERS Safety Report 4846534-7 (Version None)
Quarter: 2005Q4

REPORT INFORMATION
  Report Type: 
  Country: None (occurrence: None)
  Receive Date: 20051202
  Receipt Date: 20051118
  Transmission Date: 20060501
  Serious: Yes (Hospitalization, Other)
  Sender: FDA-Public Use
  Company Number: KII-2005-0019824

PATIENT
  Age: 62 Year
  Sex: Female

DRUGS (4)
  1. OXYCODONE HCL [Suspect]
     Indication: CANCER PAIN
     Dosage: ORAL
     Route: 048
  2. CYCLOBENZAPRINE HCL [Suspect]
     Dosage: ORAL
     Route: 048
  3. TRAZODONE HCL [Suspect]
     Dosage: ORAL
     Route: 048
  4. ETHANOL (ETHANOL) [Suspect]

REACTIONS (10)
  - ALCOHOL USE [None]
  - BLOOD ALCOHOL INCREASED [None]
  - BLOOD CALCIUM DECREASED [None]
  - BLOOD POTASSIUM DECREASED [None]
  - BLOOD PRESSURE DIASTOLIC DECREASED [None]
  - ELECTROCARDIOGRAM QT PROLONGED [None]
  - INTENTIONAL DRUG MISUSE [None]
  - MULTIPLE DRUG OVERDOSE INTENTIONAL [None]
  - RESPIRATION ABNORMAL [None]
  - SUICIDE ATTEMPT [None]
